FAERS Safety Report 6524206-0 (Version None)
Quarter: 2009Q4

REPORT INFORMATION
  Report Type: 
  Country: None (occurrence: None)
  Receive Date: 20091230
  Receipt Date: 20091230
  Transmission Date: 20100525
  Serious: No
  Sender: FDA-Public Use
  Company Number: None

PATIENT
  Sex: Male
  Weight: 113.3993 kg

DRUGS (1)
  1. DIVALPROEX SODIUM [Suspect]
     Dates: start: 20091101, end: 20091117

REACTIONS (4)
  - NAUSEA [None]
  - PRODUCT SUBSTITUTION ISSUE [None]
  - TREMOR [None]
  - VOMITING [None]
